FAERS Safety Report 17572892 (Version 3)
Quarter: 2020Q2

REPORT INFORMATION
  Report Type: Report from Study
  Country: CO (occurrence: CO)
  Receive Date: 20200323
  Receipt Date: 20200506
  Transmission Date: 20200713
  Serious: Yes (Hospitalization)
  Sender: FDA-Public Use
  Company Number: NVSC2020CO079171

PATIENT
  Age: 12 Year
  Sex: Male
  Weight: 32.5 kg

DRUGS (8)
  1. BECLOMETHASONE [Concomitant]
     Active Substance: BECLOMETHASONE
     Indication: PRODUCT USED FOR UNKNOWN INDICATION
     Dosage: 2 DF (INHALATIONS), Q12H
     Route: 055
  2. JADENU [Suspect]
     Active Substance: DEFERASIROX
     Indication: APLASTIC ANAEMIA
     Dosage: 360 MG, QD
     Route: 048
     Dates: start: 20190426
  3. ACICLOVIR [Concomitant]
     Active Substance: ACYCLOVIR
     Indication: INFECTION PROPHYLAXIS
     Dosage: 200 MG, QD
     Route: 048
  4. PREDNISOLONE. [Concomitant]
     Active Substance: PREDNISOLONE
     Indication: BONE MARROW TRANSPLANT REJECTION
     Dosage: UNK, QW
     Route: 048
  5. TRIMETHOPRIM. [Concomitant]
     Active Substance: TRIMETHOPRIM
     Indication: PRODUCT USED FOR UNKNOWN INDICATION
     Dosage: 160 MG, Q12H (TUESDAY AND FRIDAY)
     Route: 048
  6. CYCLOSPORINE. [Suspect]
     Active Substance: CYCLOSPORINE
     Indication: BONE MARROW TRANSPLANT REJECTION
     Dosage: 0.3 MG, Q12H
     Route: 048
  7. CYCLOSPORINE. [Suspect]
     Active Substance: CYCLOSPORINE
     Dosage: 0.5 MG, Q12H
     Route: 048
  8. LAGRICEL [Concomitant]
     Active Substance: HYALURONATE SODIUM
     Indication: DRY EYE
     Dosage: 1 GTT, Q4H
     Route: 047

REACTIONS (7)
  - Urinary tract infection bacterial [Recovered/Resolved]
  - Transplant rejection [Unknown]
  - Hepatitis [Recovered/Resolved]
  - Pollakiuria [Recovered/Resolved]
  - Dysuria [Recovered/Resolved]
  - Blood iron decreased [Unknown]
  - Phimosis [Recovered/Resolved]

NARRATIVE: CASE EVENT DATE: 20200306
